FAERS Safety Report 8119310-X (Version None)
Quarter: 2012Q1

REPORT INFORMATION
  Report Type: 
  Country: None (occurrence: None)
  Receive Date: 20120207
  Receipt Date: 20120123
  Transmission Date: 20120608
  Serious: Yes (Hospitalization)
  Sender: FDA-Public Use
  Company Number: US-ARROW GEN-2012-01738

PATIENT
  Age: 48 Year
  Sex: Male

DRUGS (2)
  1. METFORMIN HCL [Suspect]
     Indication: DIABETES MELLITUS
     Dosage: X2 WEEKS PRIOR TO HOSPITALIZATION
     Route: 065
  2. SIMVASTATIN [Suspect]
     Indication: DIABETES MELLITUS
     Dosage: ^BEEN ON LONG-TERM^ PRIOR TO HOSPITALIZATION
     Route: 065

REACTIONS (2)
  - DRUG INTERACTION [None]
  - HEPATOTOXICITY [None]
